FAERS Safety Report 14300155 (Version 2)
Quarter: 2018Q1

REPORT INFORMATION
  Report Type: Report from Study
  Country: None (occurrence: ES)
  Receive Date: 20171219
  Receipt Date: 20180309
  Transmission Date: 20180509
  Serious: Yes (Other)
  Sender: FDA-Public Use
  Company Number: ES-ABBVIE-17K-144-2197222-00

PATIENT
  Age: 69 Year
  Sex: Male
  Weight: 80 kg

DRUGS (1)
  1. DUODOPA [Suspect]
     Active Substance: CARBIDOPA\LEVODOPA
     Indication: PARKINSON^S DISEASE
     Route: 050
     Dates: start: 20120628

REACTIONS (13)
  - Dysuria [Unknown]
  - Aortic arteriosclerosis [Unknown]
  - Urinary incontinence [Unknown]
  - Device dislocation [Recovered/Resolved]
  - Haematuria [Recovered/Resolved]
  - Prostatic disorder [Unknown]
  - Cholelithiasis [Unknown]
  - Bladder hypertrophy [Unknown]
  - Kidney fibrosis [Unknown]
  - Anuria [Recovering/Resolving]
  - Benign prostatic hyperplasia [Unknown]
  - Hiatus hernia [Unknown]
  - Urinary retention [Unknown]

NARRATIVE: CASE EVENT DATE: 2017
